FAERS Safety Report 21838992 (Version 1)
Quarter: 2023Q1

REPORT INFORMATION
  Report Type: Spontaneous
  Country: US (occurrence: None)
  Receive Date: 20230108
  Receipt Date: 20230108
  Transmission Date: 20230417
  Serious: No
  Sender: FDA-Public Use
  Company Number: None

PATIENT
  Age: 84 Year
  Sex: Male

DRUGS (1)
  1. EMPAGLIFLOZIN [Suspect]
     Active Substance: EMPAGLIFLOZIN
     Dosage: FREQUENCY : DAILY;?
     Dates: start: 20221003

REACTIONS (10)
  - Urinary tract infection [None]
  - Syncope [None]
  - Confusional state [None]
  - Toxic encephalopathy [None]
  - Acute kidney injury [None]
  - Pyrexia [None]
  - Escherichia bacteraemia [None]
  - Enterobacter bacteraemia [None]
  - Ejection fraction decreased [None]
  - Tremor [None]

NARRATIVE: CASE EVENT DATE: 20221020
